FAERS Safety Report 23988019 (Version 1)
Quarter: 2024Q2

REPORT INFORMATION
  Report Type: Spontaneous
  Country: US (occurrence: US)
  Receive Date: 20240619
  Receipt Date: 20240619
  Transmission Date: 20240717
  Serious: No
  Sender: FDA-Public Use
  Company Number: US-Axellia-005030

PATIENT
  Sex: Male

DRUGS (1)
  1. COLISTIMETHATE SODIUM [Suspect]
     Active Substance: COLISTIMETHATE SODIUM
     Indication: Product used for unknown indication
     Dosage: TWICE PER DAY

REACTIONS (2)
  - Product reconstitution quality issue [Unknown]
  - Incorrect route of product administration [Unknown]
